FAERS Safety Report 8795726 (Version 2)
Quarter: 2012Q4

REPORT INFORMATION
  Report Type: 
  Country: US (occurrence: US)
  Receive Date: 20120920
  Receipt Date: 20121024
  Transmission Date: 20130627
  Serious: No
  Sender: FDA-Public Use
  Company Number: US-PFIZER INC-2012231331

PATIENT
  Age: 49 Year
  Sex: Male
  Weight: 112 kg

DRUGS (7)
  1. NEURONTIN [Suspect]
     Indication: SCIATICA
     Dosage: 300 mg, 3x/day
     Route: 048
     Dates: start: 2011, end: 201209
  2. PRISTIQ [Concomitant]
     Indication: DEPRESSION
     Dosage: 100 mg,daily
  3. ULTRAM [Concomitant]
     Indication: PAIN
     Dosage: UNK
  4. SYNTHROID [Concomitant]
     Indication: THYROID DISORDER
     Dosage: UNK
  5. REMERON [Concomitant]
     Dosage: UNK
  6. LOPRESSOR [Concomitant]
     Indication: BLOOD PRESSURE ABNORMAL
     Dosage: UNK
  7. VENLAFAXINE [Concomitant]
     Dosage: UNK

REACTIONS (1)
  - Drug ineffective [Unknown]
